FAERS Safety Report 19441665 (Version 1)
Quarter: 2021Q2

REPORT INFORMATION
  Report Type: Spontaneous
  Country: JP (occurrence: JP)
  Receive Date: 20210621
  Receipt Date: 20210621
  Transmission Date: 20210717
  Serious: Yes (Other)
  Sender: FDA-Public Use
  Company Number: JP-ROCHE-2803988

PATIENT
  Age: 30 Year
  Sex: Female
  Weight: 85.6 kg

DRUGS (4)
  1. PROGRAF [Concomitant]
     Active Substance: TACROLIMUS
     Indication: TAKAYASU^S ARTERITIS
     Route: 048
     Dates: start: 20200218
  2. ACTEMRA [Suspect]
     Active Substance: TOCILIZUMAB
     Indication: TAKAYASU^S ARTERITIS
     Dosage: 720 MILLIGRAM/3?6WEEKS?DATE OF LAST DOSE: 26/NOV/2019
     Route: 041
     Dates: start: 20170306
  3. TAKECAB [Concomitant]
     Active Substance: VONOPRAZAN FUMARATE
     Indication: GASTROINTESTINAL ULCER
     Route: 048
     Dates: start: 20170217
  4. ACTEMRA [Suspect]
     Active Substance: TOCILIZUMAB
     Indication: TAKAYASU^S ARTERITIS
     Dosage: 162MG,ONCE IN1WEEK
     Route: 058
     Dates: start: 20210121

REACTIONS (7)
  - Osteoporosis [Unknown]
  - Off label use [Unknown]
  - Maternal exposure before pregnancy [Unknown]
  - Pneumocystis jirovecii pneumonia [Unknown]
  - Mastitis [Recovered/Resolved]
  - Cellulitis [Unknown]
  - Iron deficiency anaemia [Unknown]

NARRATIVE: CASE EVENT DATE: 20210317
